FAERS Safety Report 5383019-6 (Version None)
Quarter: 2007Q3

REPORT INFORMATION
  Report Type: 
  Country: None (occurrence: None)
  Receive Date: 20070710
  Receipt Date: 20070629
  Transmission Date: 20080115
  Serious: Yes (Other)
  Sender: FDA-Public Use
  Company Number: GB-ROCHE-505482

PATIENT
  Age: 40 Year
  Sex: Male

DRUGS (1)
  1. ROACCUTANE [Suspect]
     Indication: ACNE
     Route: 065
     Dates: start: 20061201, end: 20070601

REACTIONS (3)
  - BLINDNESS UNILATERAL [None]
  - COORDINATION ABNORMAL [None]
  - PARAESTHESIA [None]
